FAERS Safety Report 6601458-X (Version None)
Quarter: 2010Q1

REPORT INFORMATION
  Report Type: 
  Country: None (occurrence: None)
  Receive Date: 20100225
  Receipt Date: 20100222
  Transmission Date: 20100710
  Serious: Yes (Hospitalization, Other)
  Sender: FDA-Public Use
  Company Number: SE-BAYER-201016550GPV

PATIENT
  Age: 90 Year
  Sex: Female

DRUGS (10)
  1. CIPROXIN [Suspect]
     Indication: URINARY TRACT INFECTION
     Route: 048
  2. NITROLINGUAL [Concomitant]
     Indication: DRUG USE FOR UNKNOWN INDICATION
  3. FOLACIN [Concomitant]
     Route: 048
  4. SALURES [Concomitant]
     Indication: DRUG USE FOR UNKNOWN INDICATION
  5. BEHEPAN [Concomitant]
     Indication: DRUG USE FOR UNKNOWN INDICATION
     Route: 048
  6. FURIX [Concomitant]
     Indication: DRUG USE FOR UNKNOWN INDICATION
     Route: 048
  7. TROMBYL [Concomitant]
     Indication: DRUG USE FOR UNKNOWN INDICATION
     Route: 048
  8. LACTULOS [Concomitant]
     Indication: DRUG USE FOR UNKNOWN INDICATION
  9. TAZOCIN [Concomitant]
     Indication: PSEUDOMONAS INFECTION
  10. GENSUMYCIN [Concomitant]
     Indication: ANTIBIOTIC THERAPY

REACTIONS (4)
  - AGGRESSION [None]
  - AGITATION [None]
  - CONFUSIONAL STATE [None]
  - HALLUCINATION [None]
